FAERS Safety Report 21056554 (Version 1)
Quarter: 2022Q3

REPORT INFORMATION
  Report Type: Spontaneous
  Country: US (occurrence: US)
  Receive Date: 20220708
  Receipt Date: 20220708
  Transmission Date: 20221027
  Serious: No
  Sender: FDA-Public Use
  Company Number: US-ALLERGAN-2210566US

PATIENT
  Sex: Female

DRUGS (2)
  1. QULIPTA [Suspect]
     Active Substance: ATOGEPANT
     Indication: Migraine
     Dosage: 30MG DAILY
     Dates: start: 202201
  2. CAPLYTA [Concomitant]
     Active Substance: LUMATEPERONE
     Indication: Migraine
     Dosage: UNK

REACTIONS (1)
  - Breast tenderness [Unknown]
